FAERS Safety Report 4855367-7 (Version None)
Quarter: 2005Q4

REPORT INFORMATION
  Report Type: 
  Country: None (occurrence: None)
  Receive Date: 20051125
  Receipt Date: 20050805
  Transmission Date: 20060501
  Serious: Yes (Other)
  Sender: FDA-Public Use
  Company Number: US-JNJFOC-20050802144

PATIENT
  Sex: Male

DRUGS (1)
  1. LEVAQUIN [Suspect]
     Indication: PROSTATITIS
     Dosage: 500 MG, 1IN 1 DAY, ORAL
     Route: 048
     Dates: end: 20050804

REACTIONS (9)
  - CHEST PAIN [None]
  - CONVULSION [None]
  - DIARRHOEA [None]
  - DYSPNOEA [None]
  - NAUSEA [None]
  - PRURITUS [None]
  - RASH [None]
  - SYNCOPE [None]
  - VOMITING [None]
